FAERS Safety Report 24381876 (Version 1)
Quarter: 2024Q4

REPORT INFORMATION
  Report Type: Other
  Country: AU (occurrence: AU)
  Receive Date: 20241001
  Receipt Date: 20241001
  Transmission Date: 20250115
  Serious: Yes (Other)
  Sender: TOLMAR
  Company Number: AU-TOLMAR, INC.-24AU052463

PATIENT
  Sex: Male

DRUGS (4)
  1. ELIGARD [Suspect]
     Active Substance: LEUPROLIDE ACETATE
     Indication: Prostate cancer
     Dosage: 45 MILLIGRAM, Q 6 MONTH
  2. ELIGARD [Suspect]
     Active Substance: LEUPROLIDE ACETATE
     Indication: Prostate cancer
     Dosage: UNK
  3. BICALUTAMIDE [Suspect]
     Active Substance: BICALUTAMIDE
     Indication: Product used for unknown indication
     Dosage: UNK
  4. RADIATION THERAPY [Concomitant]
     Active Substance: RADIATION THERAPY
     Indication: Product used for unknown indication

REACTIONS (2)
  - Metastases to lymph nodes [Unknown]
  - Mood swings [Unknown]
